FAERS Safety Report 9434694 (Version 1)
Quarter: 2013Q3

REPORT INFORMATION
  Report Type: Spontaneous
  Country: US (occurrence: US)
  Receive Date: 20130801
  Receipt Date: 20130801
  Transmission Date: 20140515
  Serious: Yes (Other)
  Sender: FDA-Public Use
  Company Number: US-ASTRAZENECA-2013SE57045

PATIENT
  Sex: Female

DRUGS (2)
  1. BRILINTA [Suspect]
     Route: 048
  2. PELATOL [Concomitant]
     Dates: start: 201307

REACTIONS (5)
  - Device occlusion [Unknown]
  - Platelet disorder [Unknown]
  - Angiopathy [Unknown]
  - Adverse event [Unknown]
  - Adverse event [Unknown]
